FAERS Safety Report 8085403-9 (Version None)
Quarter: 2012Q1

REPORT INFORMATION
  Report Type: 
  Country: None (occurrence: None)
  Receive Date: 20120128
  Receipt Date: 20110603
  Transmission Date: 20120608
  Serious: No
  Sender: FDA-Public Use
  Company Number: US-ABBOTT-10P-163-0688302-00

PATIENT
  Sex: Female
  Weight: 72.64 kg

DRUGS (6)
  1. METHOTREXATE [Concomitant]
     Indication: RHEUMATOID ARTHRITIS
     Dosage: 5 TABS EVERY TUES
  2. LEVOTHYROXINE SODIUM [Concomitant]
     Indication: HYPOTHYROIDISM
  3. SIMVASTATIN [Concomitant]
     Indication: BLOOD CHOLESTEROL INCREASED
  4. HUMIRA [Suspect]
     Indication: RHEUMATOID ARTHRITIS
     Dates: start: 20100801, end: 20101101
  5. HUMIRA [Suspect]
     Route: 058
     Dates: start: 20110201
  6. HUMIRA [Suspect]
     Route: 058
     Dates: start: 20110301

REACTIONS (12)
  - TUBERCULIN TEST POSITIVE [None]
  - INJECTION SITE SWELLING [None]
  - DYSURIA [None]
  - INJECTION SITE PAIN [None]
  - TUBERCULOSIS [None]
  - ADNEXA UTERI PAIN [None]
  - POLLAKIURIA [None]
  - OROPHARYNGEAL PAIN [None]
  - COUGH [None]
  - INJECTION SITE PRURITUS [None]
  - INJECTION SITE ERYTHEMA [None]
  - URINARY TRACT INFECTION [None]
